FAERS Safety Report 5295971-8 (Version None)
Quarter: 2007Q2

REPORT INFORMATION
  Report Type: 
  Country: None (occurrence: None)
  Receive Date: 20070406
  Receipt Date: 20070323
  Transmission Date: 20071010
  Serious: Yes (Life-Threatening, Hospitalization, Other)
  Sender: FDA-Public Use
  Company Number: DSA_29668_2007

PATIENT
  Age: 71 Year
  Sex: Female
  Weight: 73 kg

DRUGS (12)
  1. ENALAPRIL MALEATE [Suspect]
     Dosage: 2.5 MG Q DAY PO
     Route: 048
     Dates: start: 20070121, end: 20070215
  2. BLINDED STUDY DRUG (0653A) [Suspect]
     Indication: ACUTE CORONARY SYNDROME
     Dosage: DF 1XNIGHT PO
     Route: 048
     Dates: start: 20070119
  3. BLINDED STUDY DRUG (0733) [Suspect]
     Indication: ACUTE CORONARY SYNDROME
     Dosage: DF 1XNIGHT PO
     Route: 048
     Dates: start: 20070119
  4. PLACEBO [Suspect]
     Indication: ACUTE CORONARY SYNDROME
     Dosage: DF 1XNIGHT PO
     Route: 048
     Dates: start: 20070119
  5. CLOPIDOGREL [Concomitant]
  6. POTASSIUM ACETATE [Concomitant]
  7. SPIRONOLACTONE [Concomitant]
  8. DIGOXIN [Concomitant]
  9. DIURAL [Concomitant]
  10. PREDNISOLONE [Concomitant]
  11. TIBOLON [Concomitant]
  12. ASPIRIN [Concomitant]

REACTIONS (7)
  - ALANINE AMINOTRANSFERASE INCREASED [None]
  - BLOOD SODIUM DECREASED [None]
  - HYPERSENSITIVITY [None]
  - PLATELET COUNT INCREASED [None]
  - SPEECH DISORDER [None]
  - SWOLLEN TONGUE [None]
  - WHITE BLOOD CELL COUNT INCREASED [None]
